FAERS Safety Report 24303844 (Version 3)
Quarter: 2024Q4

REPORT INFORMATION
  Report Type: Spontaneous
  Country: US (occurrence: US)
  Receive Date: 20240910
  Receipt Date: 20241010
  Transmission Date: 20250114
  Serious: No
  Sender: PFIZER
  Company Number: US-PFIZER INC-202400251782

PATIENT
  Age: 78 Year
  Sex: Female
  Weight: 70.31 kg

DRUGS (6)
  1. PAXLOVID [Suspect]
     Active Substance: NIRMATRELVIR\RITONAVIR
     Indication: COVID-19 treatment
     Dosage: [NIRMATRELVIR 300 MG]/[RITONAVIR 100 MG]; 2X/DAY
     Route: 048
     Dates: start: 20240903, end: 20240906
  2. VITAMIN C [Concomitant]
     Active Substance: ASCORBIC ACID
     Dosage: 500 MG, DAILY
  3. VITAMINS NOS [Concomitant]
     Active Substance: VITAMINS
     Dosage: 1 DF, DAILY
  4. VITAMIN D NOS [Concomitant]
     Active Substance: CHOLECALCIFEROL\ERGOCALCIFEROL
     Dosage: 100 UG, DAILY
  5. TYLENOL EXTRA STRENGTH [Concomitant]
     Active Substance: ACETAMINOPHEN
     Indication: Discomfort
     Dosage: 2 DF, AS NEEDED
  6. TYLENOL EXTRA STRENGTH [Concomitant]
     Active Substance: ACETAMINOPHEN
     Dosage: 1000 MG, AS NEEDED

REACTIONS (10)
  - Dysgeusia [Not Recovered/Not Resolved]
  - Dizziness [Not Recovered/Not Resolved]
  - Nausea [Recovering/Resolving]
  - Mouth swelling [Not Recovered/Not Resolved]
  - Toothache [Recovering/Resolving]
  - Ear pain [Recovering/Resolving]
  - Respiratory syncytial virus infection [Recovering/Resolving]
  - Oral mucosal erythema [Unknown]
  - Oral pain [Unknown]
  - Fatigue [Recovering/Resolving]

NARRATIVE: CASE EVENT DATE: 20240904
